FAERS Safety Report 4811263-2 (Version None)
Quarter: 2005Q4

REPORT INFORMATION
  Report Type: 
  Country: None (occurrence: None)
  Receive Date: 20051027
  Receipt Date: 20050913
  Transmission Date: 20060501
  Serious: Yes (Hospitalization, Other)
  Sender: FDA-Public Use
  Company Number: US-MERCK-0509USA01841

PATIENT
  Age: 68 Year
  Sex: Female
  Weight: 118 kg

DRUGS (8)
  1. VIOXX [Suspect]
     Indication: BACK PAIN
     Route: 048
     Dates: start: 19990101, end: 20030101
  2. VIOXX [Suspect]
     Indication: ARTHRITIS
     Route: 048
     Dates: start: 19990101, end: 20030101
  3. TYLENOL W/ CODEINE NO. 3 [Concomitant]
     Route: 065
  4. VALIUM [Concomitant]
     Route: 065
  5. VASOTEC [Concomitant]
     Route: 065
  6. HYDRODIURIL [Concomitant]
     Route: 065
  7. NORVASC [Concomitant]
     Route: 065
  8. PROTONIX [Concomitant]
     Route: 065

REACTIONS (20)
  - ANXIETY [None]
  - ARTHROPATHY [None]
  - BUNDLE BRANCH BLOCK RIGHT [None]
  - CARDIOMYOPATHY [None]
  - CHEST PAIN [None]
  - CHOKING SENSATION [None]
  - CORONARY ARTERY DISEASE [None]
  - DEPRESSION [None]
  - DYSPHAGIA [None]
  - FATIGUE [None]
  - GASTROOESOPHAGEAL REFLUX DISEASE [None]
  - GOITRE [None]
  - HIATUS HERNIA [None]
  - HYPERTENSION [None]
  - HYPOTENSION [None]
  - MYOCARDIAL INFARCTION [None]
  - OESOPHAGEAL DISORDER [None]
  - PAIN IN EXTREMITY [None]
  - PULMONARY HYPERTENSION [None]
  - VENTRICULAR HYPERTROPHY [None]
